FAERS Safety Report 8593393-5 (Version None)
Quarter: 2012Q3

REPORT INFORMATION
  Report Type: 
  Country: None (occurrence: None)
  Receive Date: 20120814
  Receipt Date: 20120810
  Transmission Date: 20120928
  Serious: Yes (Death, Hospitalization)
  Sender: FDA-Public Use
  Company Number: PHHY2012HU069425

PATIENT
  Age: 29 Year
  Sex: Female

DRUGS (14)
  1. CARBOPLATIN [Suspect]
     Indication: HODGKIN'S DISEASE
  2. CYTARABINE [Suspect]
     Indication: HODGKIN'S DISEASE
  3. BLEOMYCIN SULFATE [Suspect]
     Indication: HODGKIN'S DISEASE
  4. DEXAMETHASONE [Suspect]
     Indication: HODGKIN'S DISEASE
  5. CISPLATIN [Suspect]
     Indication: HODGKIN'S DISEASE
  6. IFOSFAMIDE [Suspect]
     Indication: HODGKIN'S DISEASE
  7. DACARBAZINE [Suspect]
     Indication: HODGKIN'S DISEASE
  8. RADIOTHERAPY [Concomitant]
     Indication: HODGKIN'S DISEASE
  9. DOXORUBICIN HYDROCHLORIDE [Suspect]
     Indication: HODGKIN'S DISEASE
  10. ETOPOSIDE [Suspect]
     Indication: HODGKIN'S DISEASE
  11. GEMCITABINE HYDROCHLORIDE [Suspect]
     Indication: HODGKIN'S DISEASE
  12. VINORELBINE [Suspect]
     Indication: HODGKIN'S DISEASE
  13. VINBLASTINE SULFATE [Suspect]
     Indication: HODGKIN'S DISEASE
  14. RITUXIMAB [Suspect]
     Indication: HODGKIN'S DISEASE

REACTIONS (6)
  - CYTOMEGALOVIRUS INFECTION [None]
  - OOPHORITIS [None]
  - PNEUMONIA CYTOMEGALOVIRAL [None]
  - PYREXIA [None]
  - HISTIOCYTOSIS HAEMATOPHAGIC [None]
  - PANCYTOPENIA [None]
